FAERS Safety Report 24286943 (Version 1)
Quarter: 2024Q3

REPORT INFORMATION
  Report Type: Report from Study
  Country: FR (occurrence: FR)
  Receive Date: 20240905
  Receipt Date: 20240905
  Transmission Date: 20241017
  Serious: Yes (Other)
  Sender: ALNYLAM PHARMACEUTICALS
  Company Number: FR-ALNYLAM PHARMACEUTICALS, INC.-ALN-2024-004858

PATIENT

DRUGS (1)
  1. ONPATTRO [Suspect]
     Active Substance: PATISIRAN SODIUM
     Indication: Product used for unknown indication
     Dosage: UNK
     Route: 065

REACTIONS (8)
  - Femur fracture [Unknown]
  - Pulmonary oedema [Unknown]
  - Fall [Unknown]
  - Sensory loss [Unknown]
  - Fine motor skill dysfunction [Unknown]
  - Gait inability [Unknown]
  - Mobility decreased [Unknown]
  - Urinary incontinence [Unknown]
